FAERS Safety Report 4590291-9 (Version None)
Quarter: 2005Q1

REPORT INFORMATION
  Report Type: 
  Country: None (occurrence: None)
  Receive Date: 20050217
  Receipt Date: 20050209
  Transmission Date: 20050727
  Serious: Yes (Life-Threatening, Hospitalization)
  Sender: FDA-Public Use
  Company Number: 2005SE00543

PATIENT
  Age: 66 Year
  Sex: Female
  Weight: 56 kg

DRUGS (6)
  1. BLOPRESS [Suspect]
     Indication: HYPERTENSION
     Dosage: 4 MG QD PO
     Route: 048
     Dates: start: 20020327, end: 20031219
  2. MICARDIS [Suspect]
     Indication: HYPERTENSION
     Dosage: 20 MG QD PO
     Route: 048
     Dates: start: 20031220, end: 20040518
  3. MICARDIS [Suspect]
     Indication: HYPERTENSION
     Dosage: 40 MG QD PO
     Route: 048
     Dates: start: 20040519, end: 20041215
  4. AMARYL [Concomitant]
  5. MELBIN [Concomitant]
  6. LIVALO (PITAVASTATIN CALCIUM) [Concomitant]

REACTIONS (4)
  - CONDITION AGGRAVATED [None]
  - DIABETES MELLITUS [None]
  - INTERLEUKIN LEVEL INCREASED [None]
  - INTERSTITIAL LUNG DISEASE [None]
